FAERS Safety Report 21932057 (Version 1)
Quarter: 2023Q1

REPORT INFORMATION
  Report Type: Spontaneous
  Country: US (occurrence: None)
  Receive Date: 20230131
  Receipt Date: 20230131
  Transmission Date: 20230418
  Serious: Yes (Hospitalization)
  Sender: FDA-Public Use
  Company Number: None

PATIENT
  Age: 61 Year
  Sex: Male

DRUGS (20)
  1. SPRAVATO [Suspect]
     Active Substance: ESKETAMINE
     Indication: Essential hypertension
     Dosage: 28 MG/DEVICE NASAL??ADMINISTER 84 MG INTRANASALLY TWICE WEEKLY
     Route: 045
     Dates: start: 20221201
  2. ALLOPURINOL [Concomitant]
     Active Substance: ALLOPURINOL
  3. ALPRAZOLAM TAB [Concomitant]
  4. ATENOLOL [Concomitant]
     Active Substance: ATENOLOL
  5. ATORVASTATIN [Concomitant]
     Active Substance: ATORVASTATIN
  6. BUPROPN HCL TAB [Concomitant]
  7. BUPROPN HCL TAB XL [Concomitant]
  8. BUSPIRONE TAB [Concomitant]
  9. CLOTRIMAZOLE TRO [Concomitant]
  10. CONCERTA TAB [Concomitant]
  11. HYDROCHLOROT CAP [Concomitant]
  12. HYDROCOCO/APAP TAB [Concomitant]
  13. IBUPROFEN TAB [Concomitant]
  14. LISINOPRIL [Concomitant]
     Active Substance: LISINOPRIL
  15. MELOXICAM TAB [Concomitant]
  16. METHYLPRED TAB [Concomitant]
  17. PREGABALIN [Concomitant]
     Active Substance: PREGABALIN
  18. TAMSULOSIN [Concomitant]
     Active Substance: TAMSULOSIN
  19. TRAZODONE TAB [Concomitant]
  20. VENLAFAXINE [Concomitant]
     Active Substance: VENLAFAXINE HYDROCHLORIDE

REACTIONS (3)
  - Dysarthria [None]
  - Dehydration [None]
  - Hypertension [None]

NARRATIVE: CASE EVENT DATE: 20230105
